FAERS Safety Report 21655079 (Version 1)
Quarter: 2022Q4

REPORT INFORMATION
  Report Type: Spontaneous
  Country: US (occurrence: US)
  Receive Date: 20221129
  Receipt Date: 20221129
  Transmission Date: 20230112
  Serious: Yes (Life-Threatening, Hospitalization, Other)
  Sender: FDA-Public Use
  Company Number: US-AMGEN-USASP2022202720

PATIENT
  Age: 65 Year
  Sex: Male

DRUGS (14)
  1. FILGRASTIM [Suspect]
     Active Substance: FILGRASTIM
     Indication: Prophylaxis
     Dosage: UNK
     Route: 065
  2. CYCLOPHOSPHAMIDE [Concomitant]
     Active Substance: CYCLOPHOSPHAMIDE
  3. VINCRISTINE [Concomitant]
     Active Substance: VINCRISTINE
  4. DOXORUBICIN [Concomitant]
     Active Substance: DOXORUBICIN
  5. DEXAMETHASONE [Concomitant]
     Active Substance: DEXAMETHASONE
  6. METHOTREXATE [Concomitant]
     Active Substance: METHOTREXATE
  7. CYTARABINE [Concomitant]
     Active Substance: CYTARABINE
  8. CLADRIBINE [Concomitant]
     Active Substance: CLADRIBINE
  9. MITOXANTRONE [Concomitant]
     Active Substance: MITOXANTRONE HYDROCHLORIDE
  10. VENETOCLAX [Concomitant]
     Active Substance: VENETOCLAX
     Dosage: 400 MILLIGRAM MOUTH DAILY
  11. DECITABINE [Concomitant]
     Active Substance: DECITABINE
     Dosage: 20 MG/M2 DAILY ON DAYS 1-5 IN 28 DAY CYCLES
     Route: 040
  12. CYCLOSPORINE [Concomitant]
     Active Substance: CYCLOSPORINE
  13. MYCOPHENOLATE MOFETIL [Concomitant]
     Active Substance: MYCOPHENOLATE MOFETIL
  14. SIROLIMUS [Concomitant]
     Active Substance: SIROLIMUS

REACTIONS (5)
  - Neutropenic sepsis [Recovered/Resolved]
  - Neutropenia [Recovered/Resolved]
  - Thrombocytopenia [Unknown]
  - Graft versus host disease in skin [Recovered/Resolved]
  - Acute myeloid leukaemia recurrent [Unknown]
